FAERS Safety Report 17455810 (Version 5)
Quarter: 2020Q3

REPORT INFORMATION
  Report Type: Spontaneous
  Country: US (occurrence: US)
  Receive Date: 20200225
  Receipt Date: 20200930
  Transmission Date: 20201102
  Serious: Yes (Other)
  Sender: FDA-Public Use
  Company Number: US-SA-2020SA048701

PATIENT

DRUGS (1)
  1. DUPIXENT [Suspect]
     Active Substance: DUPILUMAB
     Indication: PRODUCT USED FOR UNKNOWN INDICATION
     Dosage: 300 MG, QOW, 300MG/2ML
     Route: 058
     Dates: start: 201912

REACTIONS (7)
  - Visual impairment [Unknown]
  - Rash [Recovering/Resolving]
  - Pneumonia [Unknown]
  - Dry eye [Unknown]
  - Feeling jittery [Unknown]
  - Asthenia [Unknown]
  - Abdominal pain upper [Unknown]

NARRATIVE: CASE EVENT DATE: 202002
